FAERS Safety Report 18106559 (Version 3)
Quarter: 2022Q3

REPORT INFORMATION
  Report Type: Spontaneous
  Country: JP (occurrence: JP)
  Receive Date: 20200804
  Receipt Date: 20220713
  Transmission Date: 20221026
  Serious: Yes (Hospitalization, Other)
  Sender: FDA-Public Use
  Company Number: JP-GSKNCCC-CASE-00999132_AE-32131

PATIENT

DRUGS (1)
  1. SERETIDE [Suspect]
     Active Substance: FLUTICASONE PROPIONATE\SALMETEROL XINAFOATE
     Indication: Asthma
     Dosage: 500 ?G, ONCE-TWICE DAILY
     Route: 055

REACTIONS (4)
  - Fall [Unknown]
  - Cervical vertebral fracture [Unknown]
  - Prescribed overdose [Unknown]
  - Product use issue [Unknown]
